FAERS Safety Report 20216837 (Version 1)
Quarter: 2021Q4

REPORT INFORMATION
  Report Type: Spontaneous
  Country: US (occurrence: None)
  Receive Date: 20211222
  Receipt Date: 20211222
  Transmission Date: 20220303
  Serious: Yes (Life-Threatening)
  Sender: FDA-Public Use
  Company Number: None

PATIENT
  Age: 73 Year
  Sex: Female
  Weight: 74.25 kg

DRUGS (1)
  1. SUTAB [Suspect]
     Active Substance: MAGNESIUM SULFATE\POTASSIUM CHLORIDE\SODIUM SULFATE
     Indication: Colonoscopy
     Dosage: OTHER FREQUENCY : 12 TABS OVER 2 DAY;?
     Route: 048
     Dates: start: 20211220, end: 20211221

REACTIONS (4)
  - Product packaging issue [None]
  - Accidental exposure to product packaging [None]
  - Product colour issue [None]
  - Product size issue [None]

NARRATIVE: CASE EVENT DATE: 20211213
